FAERS Safety Report 8494003-8 (Version None)
Quarter: 2012Q3

REPORT INFORMATION
  Report Type: 
  Country: None (occurrence: None)
  Receive Date: 20120709
  Receipt Date: 20120629
  Transmission Date: 20120928
  Serious: Yes (Other)
  Sender: FDA-Public Use
  Company Number: US-BIOGENIDEC-2011BI002084

PATIENT
  Sex: Female

DRUGS (6)
  1. CALAN [Concomitant]
     Indication: HYPERTENSION
  2. TRIAMTERENE [Concomitant]
     Indication: HYPERTENSION
  3. BLOOD PRESSURE MEDS [Concomitant]
  4. HYDROCHLOROTHIAZIDE [Concomitant]
     Indication: HYPERTENSION
  5. AVONEX [Suspect]
     Indication: MULTIPLE SCLEROSIS
     Route: 030
     Dates: start: 19970113, end: 20110101
  6. LISINOPRIL [Concomitant]
     Indication: HYPERTENSION

REACTIONS (9)
  - TRANSIENT ISCHAEMIC ATTACK [None]
  - BENIGN NEOPLASM OF THYROID GLAND [None]
  - PRURITUS [None]
  - RENAL FAILURE CHRONIC [None]
  - RESPIRATORY DISORDER [None]
  - GENERAL SYMPTOM [None]
  - DYSPNOEA [None]
  - CONVULSION [None]
  - PRURITUS GENERALISED [None]
